FAERS Safety Report 23657503 (Version 1)
Quarter: 2024Q1

REPORT INFORMATION
  Report Type: Report from Study
  Country: US (occurrence: US)
  Receive Date: 20240321
  Receipt Date: 20240321
  Transmission Date: 20240409
  Serious: Yes (Hospitalization)
  Sender: FDA-Public Use
  Company Number: US-MYLANLABS-2024M1025858

PATIENT
  Age: 66 Year
  Sex: Female

DRUGS (2)
  1. BIVALIRUDIN [Suspect]
     Active Substance: BIVALIRUDIN
     Indication: Anticoagulant therapy
     Dosage: 0.1 MILLIGRAM/KILOGRAM, QH; INITIAL DOSAGE
     Route: 065
  2. BIVALIRUDIN [Suspect]
     Active Substance: BIVALIRUDIN
     Dosage: 0.15 MILLIGRAM/KILOGRAM, QH; STABLE DOSAGE
     Route: 065

REACTIONS (1)
  - Drug ineffective [Unknown]
